FAERS Safety Report 7499816-7 (Version None)
Quarter: 2011Q2

REPORT INFORMATION
  Report Type: 
  Country: None (occurrence: None)
  Receive Date: 20110524
  Receipt Date: 20110512
  Transmission Date: 20111010
  Serious: Yes (Hospitalization, Other)
  Sender: FDA-Public Use
  Company Number: BE-BAYER-201042958GPV

PATIENT
  Age: 69 Year
  Sex: Male
  Weight: 62 kg

DRUGS (12)
  1. KENACORT [Concomitant]
     Indication: BACK PAIN
     Dates: start: 20100916
  2. DURAGESIC-100 [Concomitant]
     Dosage: 25 NOT APPL., UNK
     Dates: start: 20110218
  3. ANTIBIOTICS [Concomitant]
  4. NEXAVAR [Suspect]
     Dosage: UNK
     Route: 048
     Dates: end: 20110510
  5. SIMVASTATIN [Concomitant]
     Indication: PRODUCT USED FOR UNKNOWN INDICATION
     Dosage: 20 MG, QD
  6. NEXAVAR [Suspect]
     Indication: RENAL CELL CARCINOMA
     Dosage: 400 MG, QD
     Route: 048
     Dates: start: 20100906, end: 20110101
  7. DISPRIL [Concomitant]
     Indication: ANTICOAGULANT THERAPY
     Dosage: 150 MG, QD
  8. DURAGESIC-100 [Concomitant]
     Dosage: 50 NOT APPL., Q72HR
  9. NEXAVAR [Suspect]
     Dosage: DAILY DOSE 400 MG
     Dates: start: 20110218, end: 20110226
  10. ANTIHYPERTENSIVES [Concomitant]
     Indication: BLOOD PRESSURE INCREASED
  11. PANTOPRAZOLE [Concomitant]
     Indication: GASTRIC DISORDER
     Dosage: 40 MG, QD
  12. BISOPROLOL FUMARATE [Concomitant]
     Indication: PRODUCT USED FOR UNKNOWN INDICATION
     Dosage: 5 MG, QD

REACTIONS (18)
  - CHOLECYSTITIS [None]
  - NAUSEA [None]
  - DYSPNOEA [None]
  - CYSTITIS [None]
  - NASOPHARYNGITIS [None]
  - BLOOD PRESSURE INCREASED [None]
  - GALLBLADDER ENLARGEMENT [None]
  - WEIGHT DECREASED [None]
  - POSTOPERATIVE WOUND INFECTION [None]
  - HAEMORRHOIDS [None]
  - ABDOMINAL PAIN [None]
  - CHOLELITHIASIS [None]
  - NOCTURIA [None]
  - COUGH [None]
  - BRONCHITIS [None]
  - ASTHENIA [None]
  - ERUCTATION [None]
  - DECREASED APPETITE [None]
